FAERS Safety Report 18999811 (Version 2)
Quarter: 2021Q2

REPORT INFORMATION
  Report Type: Report from Study
  Country: US (occurrence: US)
  Receive Date: 20210311
  Receipt Date: 20210405
  Transmission Date: 20210717
  Serious: No
  Sender: FDA-Public Use
  Company Number: US-PFIZER INC-2021259231

PATIENT
  Age: 50 Year
  Sex: Female

DRUGS (1)
  1. SOMAVERT [Suspect]
     Active Substance: PEGVISOMANT
     Dosage: 20 MG
     Dates: start: 20210101

REACTIONS (1)
  - Headache [Unknown]

NARRATIVE: CASE EVENT DATE: 202101
